FAERS Safety Report 9706665 (Version 2)
Quarter: 2013Q4

REPORT INFORMATION
  Report Type: Spontaneous
  Country: FR (occurrence: FR)
  Receive Date: 20131125
  Receipt Date: 20131125
  Transmission Date: 20140711
  Serious: Yes (Life-Threatening, Hospitalization)
  Sender: FDA-Public Use
  Company Number: FR-MERCK-1308FRA014107

PATIENT
  Age: 45 Year
  Sex: Female
  Weight: 54 kg

DRUGS (9)
  1. EMEND [Suspect]
     Dosage: 125 MG, CYCLICAL
     Route: 048
     Dates: start: 20130313
  2. EMEND [Suspect]
     Dosage: 80 MG, CYCLICAL
     Route: 048
     Dates: start: 201303, end: 201303
  3. EMEND [Suspect]
     Dosage: 80 MG, CYCLICAL
     Route: 048
     Dates: start: 201303, end: 201303
  4. POLARAMINE [Suspect]
     Dosage: 5 MG, UNK
     Route: 042
     Dates: start: 20130313
  5. SOLU-MEDROL [Suspect]
     Indication: GASTROINTESTINAL CARCINOMA
     Dosage: 120 MG, QW
     Dates: start: 20130813, end: 20130813
  6. AZANTAC [Suspect]
     Dosage: 50 MG, QW
     Route: 042
     Dates: start: 20130813, end: 20130813
  7. ZOPHREN (ONDANSETRON) [Suspect]
     Indication: GASTROINTESTINAL CARCINOMA
     Dosage: 8 MG, UNK
  8. PACLITAXEL [Suspect]
     Indication: GASTROINTESTINAL CARCINOMA
     Dosage: 126 MG, UNK
  9. CARBOPLATIN [Suspect]
     Indication: GASTROINTESTINAL CARCINOMA
     Dosage: 230 MG, UNK

REACTIONS (2)
  - Oropharyngeal discomfort [Recovered/Resolved]
  - Generalised erythema [Recovered/Resolved]
